FAERS Safety Report 13014190 (Version 1)
Quarter: 2016Q4

REPORT INFORMATION
  Report Type: Report from Study
  Country: BE (occurrence: BE)
  Receive Date: 20161209
  Receipt Date: 20161209
  Transmission Date: 20170207
  Serious: Yes (Death, Other)
  Sender: FDA-Public Use
  Company Number: BE-TEVA-718018ISR

PATIENT
  Age: 68 Year
  Sex: Male

DRUGS (5)
  1. REGORAFENIB [Interacting]
     Active Substance: REGORAFENIB
     Indication: COLORECTAL CANCER METASTATIC
     Dosage: 160 MG/DAY
     Route: 065
  2. SIMVASTATIN. [Suspect]
     Active Substance: SIMVASTATIN
     Route: 065
  3. BISOPROLOL [Interacting]
     Active Substance: BISOPROLOL
     Route: 065
  4. LISINOPRIL. [Concomitant]
     Active Substance: LISINOPRIL
     Route: 065
  5. APIXABAN [Interacting]
     Active Substance: APIXABAN
     Route: 065

REACTIONS (4)
  - Hepatitis toxic [Unknown]
  - Encephalopathy [Unknown]
  - Hepatic failure [Fatal]
  - Drug interaction [Unknown]
